FAERS Safety Report 8346797-X (Version None)
Quarter: 2012Q2

REPORT INFORMATION
  Report Type: 
  Country: None (occurrence: None)
  Receive Date: 20120509
  Receipt Date: 20120502
  Transmission Date: 20120825
  Serious: Yes (Other)
  Sender: FDA-Public Use
  Company Number: US-BAYER-2012-042904

PATIENT
  Age: 38 Year
  Sex: Female

DRUGS (1)
  1. MIRENA [Suspect]
     Indication: CONTRACEPTION
     Dosage: 20 ?G/D, CONT
     Route: 015
     Dates: start: 20120201

REACTIONS (6)
  - FLUID RETENTION [None]
  - MOOD SWINGS [None]
  - GENITAL HAEMORRHAGE [None]
  - HEADACHE [None]
  - DEPRESSION [None]
  - ALOPECIA [None]
